FAERS Safety Report 10459325 (Version 2)
Quarter: 2014Q3

REPORT INFORMATION
  Report Type: Report from Study
  Country: CA (occurrence: CA)
  Receive Date: 20140917
  Receipt Date: 20140917
  Transmission Date: 20150326
  Serious: Yes (Other)
  Sender: FDA-Public Use
  Company Number: CA-ABBVIE-14K-028-1280725-00

PATIENT
  Sex: Male

DRUGS (2)
  1. HUMIRA [Suspect]
     Active Substance: ADALIMUMAB
     Route: 058
  2. HUMIRA [Suspect]
     Active Substance: ADALIMUMAB
     Indication: CROHN^S DISEASE
     Route: 058
     Dates: start: 20080503

REACTIONS (7)
  - Intestinal obstruction [Recovered/Resolved]
  - Postoperative adhesion [Recovered/Resolved]
  - Blood iron abnormal [Unknown]
  - Crohn^s disease [Not Recovered/Not Resolved]
  - Intestinal stenosis [Recovered/Resolved]
  - Unevaluable event [Unknown]
  - Fatigue [Not Recovered/Not Resolved]

NARRATIVE: CASE EVENT DATE: 2014
